FAERS Safety Report 25820728 (Version 2)
Quarter: 2025Q4

REPORT INFORMATION
  Report Type: Report from Study
  Country: US (occurrence: US)
  Receive Date: 20250919
  Receipt Date: 20251001
  Transmission Date: 20260118
  Serious: Yes (Other)
  Sender: UCB
  Company Number: US-UCBSA-2025037732

PATIENT
  Age: 5 Year
  Sex: Female
  Weight: 41 kg

DRUGS (4)
  1. FINTEPLA [Suspect]
     Active Substance: FENFLURAMINE
     Indication: Severe myoclonic epilepsy of infancy
     Dosage: 6 ML QAM AND 7 ML QPM
     Dates: start: 20201002
  2. FINTEPLA [Suspect]
     Active Substance: FENFLURAMINE
     Dosage: 28.8 MILLIGRAM PER DAY
     Dates: start: 20240104
  3. FINTEPLA [Suspect]
     Active Substance: FENFLURAMINE
     Dosage: 6 ML QAM AND 7 ML QPM
  4. FINTEPLA [Suspect]
     Active Substance: FENFLURAMINE
     Dosage: 6 ML QAM AND 7 ML QPM

REACTIONS (6)
  - Neuroprosthesis implantation [Recovered/Resolved]
  - Fatigue [Recovering/Resolving]
  - Somnolence [Recovering/Resolving]
  - Decreased appetite [Recovering/Resolving]
  - Off label use [Unknown]
  - Product use issue [Unknown]

NARRATIVE: CASE EVENT DATE: 20201002
